FAERS Safety Report 5487329-3 (Version None)
Quarter: 2007Q4

REPORT INFORMATION
  Report Type: 
  Country: None (occurrence: None)
  Receive Date: 20071015
  Receipt Date: 20071001
  Transmission Date: 20080405
  Serious: Yes (Hospitalization)
  Sender: FDA-Public Use
  Company Number: 2007EU002177

PATIENT
  Age: 64 Year
  Sex: Female

DRUGS (1)
  1. SOLIFENACIN(SOLIFENACIN) TABLET, 5MG [Suspect]
     Indication: URINARY INCONTINENCE
     Dosage: 5 MG, UID/QD, ORAL
     Route: 048
     Dates: start: 20070825, end: 20070909

REACTIONS (1)
  - HAEMORRHAGE URINARY TRACT [None]
